FAERS Safety Report 4511689-0 (Version None)
Quarter: 2004Q4

REPORT INFORMATION
  Report Type: 
  Country: None (occurrence: None)
  Receive Date: 20041129
  Receipt Date: 20041117
  Transmission Date: 20050328
  Serious: Yes (Other)
  Sender: FDA-Public Use
  Company Number: PHHO2004JP16325

PATIENT
  Age: 63 Year
  Sex: Female
  Weight: 50 kg

DRUGS (5)
  1. GLEEVEC [Suspect]
     Indication: GASTROINTESTINAL STROMAL TUMOUR
     Dosage: 400 MG, QD
     Route: 048
     Dates: start: 20031007, end: 20031016
  2. GLEEVEC [Suspect]
     Dosage: NO TREATMENT
     Dates: start: 20031017, end: 20031104
  3. GLEEVEC [Suspect]
     Dosage: 200 MG, QD
     Route: 048
     Dates: start: 20031105, end: 20031226
  4. GLEEVEC [Suspect]
     Dosage: NO TREATMENT
     Dates: start: 20031227, end: 20040216
  5. GLEEVEC [Suspect]
     Dosage: 100 MG, QD
     Route: 048
     Dates: start: 20040217, end: 20040227

REACTIONS (3)
  - EOSINOPHILIA [None]
  - RASH [None]
  - WHITE BLOOD CELL COUNT DECREASED [None]
